FAERS Safety Report 7692653-X (Version None)
Quarter: 2011Q3

REPORT INFORMATION
  Report Type: 
  Country: None (occurrence: None)
  Receive Date: 20110819
  Receipt Date: 20110805
  Transmission Date: 20111222
  Serious: Yes (Death, Hospitalization)
  Sender: FDA-Public Use
  Company Number: GB-RANBAXY-2011R1-46875

PATIENT
  Age: 80 Year
  Sex: Male

DRUGS (1)
  1. AMOXICILLIN AND CLAVULANATE POTASSIUM [Suspect]
     Indication: LIVER ABSCESS
     Dosage: 500/125 MG, 1 DF, TID
     Route: 048
     Dates: start: 20110701, end: 20110701

REACTIONS (8)
  - HALLUCINATION [None]
  - INSOMNIA [None]
  - DECREASED APPETITE [None]
  - CONFUSIONAL STATE [None]
  - DIARRHOEA [None]
  - DEATH [None]
  - POISONING [None]
  - DYSPNOEA [None]
